FAERS Safety Report 18728367 (Version 3)
Quarter: 2021Q1

REPORT INFORMATION
  Report Type: Report from Study
  Country: None (occurrence: US)
  Receive Date: 20210111
  Receipt Date: 20210221
  Transmission Date: 20210419
  Serious: Yes (Hospitalization, Other)
  Sender: FDA-Public Use
  Company Number: US-ABBVIE-21K-163-3714563-00

PATIENT
  Sex: Female
  Weight: 61.29 kg

DRUGS (4)
  1. SYNTHROID [Concomitant]
     Active Substance: LEVOTHYROXINE SODIUM
     Indication: PRODUCT USED FOR UNKNOWN INDICATION
  2. HUMIRA [Suspect]
     Active Substance: ADALIMUMAB
     Indication: CROHN^S DISEASE
     Route: 058
     Dates: start: 2009, end: 2016
  3. HUMIRA [Suspect]
     Active Substance: ADALIMUMAB
     Indication: PSORIASIS
     Route: 058
     Dates: start: 2018
  4. MODERNA COVID?19 VACCINE [Suspect]
     Active Substance: CX-024414
     Indication: COVID-19 IMMUNISATION
     Dosage: MANFUCATURED: MODERNA
     Route: 030

REACTIONS (16)
  - Malaise [Recovered/Resolved]
  - Lymphadenopathy [Unknown]
  - Hypertension [Recovering/Resolving]
  - Intestinal obstruction [Recovered/Resolved]
  - Large intestine polyp [Recovered/Resolved]
  - Feeling abnormal [Unknown]
  - Large intestine polyp [Recovered/Resolved]
  - Neuralgia [Not Recovered/Not Resolved]
  - Musculoskeletal stiffness [Unknown]
  - Large intestine polyp [Recovered/Resolved]
  - Neck pain [Unknown]
  - Large intestine polyp [Recovered/Resolved]
  - Abdominal adhesions [Recovered/Resolved]
  - Gallbladder hypofunction [Recovered/Resolved]
  - Chills [Recovered/Resolved]
  - Blister [Recovered/Resolved]

NARRATIVE: CASE EVENT DATE: 2009
